FAERS Safety Report 24030862 (Version 4)
Quarter: 2024Q3

REPORT INFORMATION
  Report Type: Report from Study
  Country: US (occurrence: US)
  Receive Date: 20240628
  Receipt Date: 20240730
  Transmission Date: 20241017
  Serious: Yes (Other)
  Sender: APELLIS PHARMACEUTICALS
  Company Number: US-APELLIS-2024-APL-0000291

PATIENT

DRUGS (5)
  1. PEGCETACOPLAN [Suspect]
     Active Substance: PEGCETACOPLAN
     Indication: Paroxysmal nocturnal haemoglobinuria
     Dosage: 1080MG, 2 TIMES PER WEEK
     Route: 058
     Dates: start: 20231011
  2. PREDNISONE [Suspect]
     Active Substance: PREDNISONE
     Indication: Product used for unknown indication
     Dosage: 15.000MG QD
  3. PREDNISONE [Suspect]
     Active Substance: PREDNISONE
     Dosage: PREDNISONE 12.5MG TAPER, GOAL 5MG DAILY
  4. PREDNISONE [Suspect]
     Active Substance: PREDNISONE
     Dosage: 10MG TABLET DAILY
  5. PENICILLIN [Suspect]
     Active Substance: PENICILLIN
     Indication: Product used for unknown indication

REACTIONS (19)
  - Polymyalgia rheumatica [Unknown]
  - Renal impairment [Unknown]
  - Retinal tear [Unknown]
  - Retinal haemorrhage [Unknown]
  - Dyspepsia [Unknown]
  - Visual impairment [Unknown]
  - Tachycardia [Not Recovered/Not Resolved]
  - Haemoglobin abnormal [Unknown]
  - Platelet count decreased [Not Recovered/Not Resolved]
  - Dry eye [Unknown]
  - Headache [Unknown]
  - Tachycardia [Unknown]
  - Weight decreased [Not Recovered/Not Resolved]
  - Eye haemorrhage [Unknown]
  - Ocular hyperaemia [Unknown]
  - Middle insomnia [Unknown]
  - Dizziness [Not Recovered/Not Resolved]
  - Rash [Unknown]
  - Decreased appetite [Unknown]

NARRATIVE: CASE EVENT DATE: 20240610
